FAERS Safety Report 8593255 (Version 2)
Quarter: 2013Q3

REPORT INFORMATION
  Report Type: Spontaneous
  Country: US (occurrence: US)
  Receive Date: 20120604
  Receipt Date: 20130708
  Transmission Date: 20140515
  Serious: No
  Sender: FDA-Public Use
  Company Number: US-ASTRAZENECA-2012SE35190

PATIENT
  Age: 54 Year
  Sex: Female
  Weight: 61.2 kg

DRUGS (1)
  1. NEXIUM [Suspect]
     Indication: DYSPEPSIA
     Route: 048
     Dates: start: 2005, end: 2012

REACTIONS (2)
  - Osteoporosis [Unknown]
  - Multiple fractures [Unknown]
